FAERS Safety Report 9423462 (Version 1)
Quarter: 2013Q3

REPORT INFORMATION
  Report Type: Spontaneous
  Country: US (occurrence: US)
  Receive Date: 20130726
  Receipt Date: 20130726
  Transmission Date: 20140515
  Serious: No
  Sender: FDA-Public Use
  Company Number: US-UPSHER-SMITH LABORATORIES, INC.-13002451

PATIENT
  Age: 54 Year
  Sex: Female

DRUGS (8)
  1. JANTOVEN [Suspect]
     Indication: AORTIC VALVE REPLACEMENT
     Dosage: 7.5 MG QD 5 D/WK AND 3.75 MG QD 2 D/WK
     Route: 048
     Dates: start: 20130703, end: 20130711
  2. BABY ASPIRIN [Concomitant]
     Dosage: UNK
  3. LEVOTHYROXINE [Concomitant]
     Dosage: UNK
  4. TRAMADOL [Concomitant]
     Dosage: UNK
  5. TYLENOL                            /00020001/ [Concomitant]
     Dosage: UNK
  6. PSYLLIUM HYDROPHILIC MUCILLOID [Concomitant]
     Dosage: UNK
  7. OMEPRAZOLE [Concomitant]
     Dosage: UNK
  8. FENOFIBRATE [Suspect]
     Indication: PRODUCT USED FOR UNKNOWN INDICATION
     Dosage: UNK, QD
     Route: 048

REACTIONS (2)
  - International normalised ratio increased [Recovered/Resolved]
  - Drug interaction [Recovered/Resolved]
